FAERS Safety Report 11696089 (Version 1)
Quarter: 2015Q4

REPORT INFORMATION
  Report Type: Spontaneous
  Country: US (occurrence: None)
  Receive Date: 20151103
  Receipt Date: 20151103
  Transmission Date: 20160314
  Serious: No
  Sender: FDA-Public Use
  Company Number: None

PATIENT
  Sex: Female
  Weight: 90.72 kg

DRUGS (10)
  1. ALTACE [Concomitant]
     Active Substance: RAMIPRIL
  2. LOW DOSE ASPIRIN [Concomitant]
     Active Substance: ASPIRIN
  3. NORVASC [Concomitant]
     Active Substance: AMLODIPINE BESYLATE
  4. DYRENIUM [Suspect]
     Active Substance: TRIAMTERENE
     Indication: HYPERTENSION
     Route: 048
     Dates: start: 20150930, end: 20151024
  5. VITAMIN D3 [Concomitant]
     Active Substance: CHOLECALCIFEROL
  6. METAMUCIL [Concomitant]
     Active Substance: PLANTAGO SEED
  7. DYRENIUM [Suspect]
     Active Substance: TRIAMTERENE
     Indication: OEDEMA PERIPHERAL
     Route: 048
     Dates: start: 20150930, end: 20151024
  8. COUMADIN [Concomitant]
     Active Substance: WARFARIN SODIUM
  9. B-50 [Concomitant]
  10. CENTRUM SILVER [Concomitant]
     Active Substance: MINERALS\VITAMINS

REACTIONS (5)
  - Pain in extremity [None]
  - Muscular weakness [None]
  - Myalgia [None]
  - Paraesthesia [None]
  - Mobility decreased [None]
